FAERS Safety Report 16098506 (Version 1)
Quarter: 2019Q1

REPORT INFORMATION
  Report Type: Spontaneous
  Country: HR (occurrence: HR)
  Receive Date: 20190321
  Receipt Date: 20190321
  Transmission Date: 20190418
  Serious: Yes (Other)
  Sender: FDA-Public Use
  Company Number: HR-TEVA-2019-HR-1026824

PATIENT
  Age: 86 Year
  Sex: Female
  Weight: 62 kg

DRUGS (3)
  1. PRYLAR [Concomitant]
     Indication: ESSENTIAL HYPERTENSION
     Dosage: 1 DOSAGE FORMS DAILY;
     Route: 048
     Dates: start: 20160301
  2. LARIBON [Suspect]
     Active Substance: BUPRENORPHINE
     Indication: PAIN
     Dosage: 52.5 MICROGRAM DAILY;
     Route: 062
     Dates: start: 20181031, end: 20181113
  3. LUNATA [Concomitant]
     Active Substance: ZOLPIDEM TARTRATE
     Indication: INSOMNIA
     Dosage: 10 MILLIGRAM DAILY;
     Route: 048
     Dates: start: 20180320

REACTIONS (3)
  - Insomnia [Recovered/Resolved]
  - Sleep terror [Recovered/Resolved]
  - Medication error [Recovered/Resolved]

NARRATIVE: CASE EVENT DATE: 20181113
